FAERS Safety Report 18601651 (Version 1)
Quarter: 2020Q4

REPORT INFORMATION
  Report Type: Spontaneous
  Country: CN (occurrence: CN)
  Receive Date: 20201210
  Receipt Date: 20201210
  Transmission Date: 20210114
  Serious: Yes (Disabling, Other)
  Sender: FDA-Public Use
  Company Number: CN-ABBVIE-20P-035-3683810-00

PATIENT
  Age: 37 Year
  Sex: Male
  Weight: 71 kg

DRUGS (4)
  1. PARIET [Suspect]
     Active Substance: RABEPRAZOLE SODIUM
     Indication: HELICOBACTER INFECTION
     Dosage: DD: 20 MG
     Route: 048
     Dates: start: 20201120, end: 20201201
  2. AMOXICILLIN. [Suspect]
     Active Substance: AMOXICILLIN
     Indication: HELICOBACTER INFECTION
     Dosage: DD: 2 G
     Route: 048
     Dates: start: 20201120, end: 20201201
  3. KLACID [Suspect]
     Active Substance: CLARITHROMYCIN
     Indication: HELICOBACTER INFECTION
     Dosage: DD: 1 G
     Route: 048
     Dates: start: 20201120, end: 20201201
  4. LI ZHU DE LE [Concomitant]
     Active Substance: BISMUTH SUBCITRATE
     Indication: HELICOBACTER INFECTION
     Dosage: DD: 4 G
     Route: 048
     Dates: start: 20201120, end: 20201201

REACTIONS (5)
  - Rash maculo-papular [Recovering/Resolving]
  - Skin burning sensation [Recovering/Resolving]
  - Pruritus [Recovering/Resolving]
  - Drug eruption [Recovering/Resolving]
  - Rash erythematous [Recovering/Resolving]

NARRATIVE: CASE EVENT DATE: 20201130
